FAERS Safety Report 8956331 (Version 1)
Quarter: 2012Q4

REPORT INFORMATION
  Report Type: 
  Country: GB (occurrence: GB)
  Receive Date: 20121210
  Receipt Date: 20121210
  Transmission Date: 20130627
  Serious: Yes (Hospitalization, Other)
  Sender: FDA-Public Use
  Company Number: GB-JNJFOC-2001068958GB

PATIENT
  Age: 70 Year
  Sex: Female

DRUGS (3)
  1. MOTRIN [Suspect]
     Indication: RHEUMATOID ARTHRITIS
     Dosage: Frequency Text: tid Daily Dose Text: 400 Milligram, tid Daily Dose Qty: 1200 mg
     Route: 048
  2. SALAZOPYRIN [Suspect]
     Indication: RHEUMATOID ARTHRITIS
     Dosage: Frequency Text: qd Daily Dose Text: 1 Gram, qd Daily Dose Qty: 1 g
     Route: 048
     Dates: start: 200105, end: 20010704
  3. ATENOLOL [Concomitant]
     Indication: HYPERTENSION
     Dosage: Frequency Text: qd Daily Dose Text: 50 Milligram, qd Daily Dose Qty: 50 mg
     Route: 048

REACTIONS (7)
  - Fatigue [Recovering/Resolving]
  - Melaena [Recovering/Resolving]
  - Nausea [Recovering/Resolving]
  - Anaemia [Recovering/Resolving]
  - Decreased appetite [Recovering/Resolving]
  - Malaise [Recovering/Resolving]
  - Asthenia [Recovering/Resolving]
